FAERS Safety Report 7374658-1 (Version None)
Quarter: 2011Q1

REPORT INFORMATION
  Report Type: 
  Country: None (occurrence: None)
  Receive Date: 20110325
  Receipt Date: 20100625
  Transmission Date: 20110831
  Serious: No
  Sender: FDA-Public Use
  Company Number: US-MYLANLABS-2010S1011448

PATIENT
  Age: 84 Year
  Sex: Female

DRUGS (2)
  1. SIMVASTATIN [Concomitant]
  2. FENTANYL-100 [Suspect]
     Indication: PAIN
     Dosage: Q72H
     Route: 062
     Dates: start: 20100610

REACTIONS (2)
  - THROMBOSIS [None]
  - APPLICATION SITE REACTION [None]
